FAERS Safety Report 7603098-2 (Version None)
Quarter: 2011Q3

REPORT INFORMATION
  Report Type: 
  Country: None (occurrence: None)
  Receive Date: 20110712
  Receipt Date: 20110701
  Transmission Date: 20111222
  Serious: Yes (Death, Other)
  Sender: FDA-Public Use
  Company Number: JP-AMGEN-JPNCT2011027423

PATIENT
  Age: 91 Year
  Sex: Female

DRUGS (6)
  1. FOSRENOL [Concomitant]
     Indication: HYPERPHOSPHATAEMIA
     Route: 048
     Dates: end: 20100412
  2. CINACALCET HCL - KHK [Suspect]
     Indication: HYPERPARATHYROIDISM SECONDARY
     Dosage: 25 MG, UNK
     Dates: start: 20091002, end: 20100412
  3. FERROUS CITRATE [Concomitant]
     Indication: IRON DEFICIENCY ANAEMIA
     Route: 048
     Dates: end: 20100420
  4. ANPLAG [Concomitant]
     Indication: ARTERIOSCLEROSIS OBLITERANS
     Route: 048
     Dates: end: 20100420
  5. SELBEX [Concomitant]
     Indication: GASTRITIS
     Route: 048
     Dates: end: 20100420
  6. NESPO [Concomitant]
     Indication: NEPHROGENIC ANAEMIA
     Route: 040
     Dates: end: 20100420

REACTIONS (2)
  - DECREASED APPETITE [None]
  - SEPSIS [None]
